FAERS Safety Report 8107756-5 (Version None)
Quarter: 2012Q1

REPORT INFORMATION
  Report Type: 
  Country: None (occurrence: None)
  Receive Date: 20120202
  Receipt Date: 20120125
  Transmission Date: 20120608
  Serious: Yes (Hospitalization, Other)
  Sender: FDA-Public Use
  Company Number: DE-JNJFOC-20111111572

PATIENT
  Sex: Male
  Weight: 110 kg

DRUGS (6)
  1. XARELTO [Suspect]
     Indication: THROMBOSIS PROPHYLAXIS
     Route: 048
     Dates: start: 20111110, end: 20111121
  2. VOLTAREN [Concomitant]
     Route: 048
     Dates: start: 20111107, end: 20111122
  3. PANTOPRAZOLE [Concomitant]
     Route: 048
     Dates: start: 20111107, end: 20111122
  4. NOVALGIN [Concomitant]
  5. XARELTO [Suspect]
     Indication: HIP ARTHROPLASTY
     Route: 048
     Dates: start: 20111110, end: 20111121
  6. ATACAND [Concomitant]
     Route: 048
     Dates: start: 20111107, end: 20111122

REACTIONS (5)
  - JOINT SWELLING [None]
  - DEEP VEIN THROMBOSIS [None]
  - SENSATION OF PRESSURE [None]
  - WOUND SECRETION [None]
  - IMPAIRED HEALING [None]
